FAERS Safety Report 7037873-2 (Version None)
Quarter: 2010Q4

REPORT INFORMATION
  Report Type: 
  Country: None (occurrence: None)
  Receive Date: 20101011
  Receipt Date: 20101007
  Transmission Date: 20110411
  Serious: Yes (Other)
  Sender: FDA-Public Use
  Company Number: IT-BRISTOL-MYERS SQUIBB COMPANY-15324585

PATIENT
  Age: 56 Year
  Sex: Male

DRUGS (1)
  1. BARACLUDE [Suspect]
     Dates: start: 20081001

REACTIONS (2)
  - HEPATITIS B DNA INCREASED [None]
  - KIDNEY INFECTION [None]
